FAERS Safety Report 4401780-1 (Version None)
Quarter: 2004Q3

REPORT INFORMATION
  Report Type: 
  Country: None (occurrence: None)
  Receive Date: 20040719
  Receipt Date: 20040630
  Transmission Date: 20050211
  Serious: Yes (Other)
  Sender: FDA-Public Use
  Company Number: PHBS2004CO08913

PATIENT
  Age: 37 Year
  Sex: Female

DRUGS (1)
  1. ZELMAC [Suspect]
     Indication: IRRITABLE BOWEL SYNDROME
     Dosage: 12 MG/DAY
     Route: 048
     Dates: start: 20030601, end: 20030701

REACTIONS (7)
  - COAGULATION TIME ABNORMAL [None]
  - HAEMATOMA [None]
  - HAEMORRHAGE [None]
  - MOUTH HAEMORRHAGE [None]
  - TOOTH EXTRACTION [None]
  - UTERINE HAEMORRHAGE [None]
  - UTERINE LEIOMYOMA [None]
